FAERS Safety Report 23124523 (Version 9)
Quarter: 2025Q1

REPORT INFORMATION
  Report Type: Spontaneous
  Country: JP (occurrence: JP)
  Receive Date: 20231030
  Receipt Date: 20250321
  Transmission Date: 20250409
  Serious: Yes (Hospitalization)
  Sender: ORGANON
  Company Number: JP-ORGANON-O2309JPN003062

PATIENT
  Age: 76 Year
  Sex: Male

DRUGS (13)
  1. BONALON [Suspect]
     Active Substance: ALENDRONATE SODIUM
     Indication: Osteoporosis
     Dosage: 35 MILLIGRAM PER WEEK
     Route: 048
     Dates: start: 20230902, end: 20230915
  2. GEMZAR [Suspect]
     Active Substance: GEMCITABINE HYDROCHLORIDE
     Indication: Lung neoplasm malignant
     Route: 041
     Dates: start: 20230915, end: 20230915
  3. CARBOPLATIN [Suspect]
     Active Substance: CARBOPLATIN
     Indication: Lung neoplasm malignant
     Route: 041
     Dates: start: 20230224, end: 20230915
  4. AZOSEMIDE [Concomitant]
     Active Substance: AZOSEMIDE
     Indication: Oedema peripheral
     Dosage: 30 MG/DAY, AFTER BREAKFAST
     Route: 048
     Dates: start: 20230701
  5. VFEND [Concomitant]
     Active Substance: VORICONAZOLE
     Indication: Bronchopulmonary aspergillosis
     Dosage: 200 MG/DAY, TWO HOURS AFTER BREAKFAST AND SUPPER
     Route: 048
     Dates: start: 20230901
  6. LAFUTIDINE [Concomitant]
     Active Substance: LAFUTIDINE
     Indication: Gastric ulcer
     Dosage: 10 MG/DAY AFTER SUPPER
     Route: 048
     Dates: start: 20230901
  7. SULFAMETHOXAZOLE\TRIMETHOPRIM [Concomitant]
     Active Substance: SULFAMETHOXAZOLE\TRIMETHOPRIM
     Indication: Infection prophylaxis
     Dosage: 1 DF/DAY, AFTER BREAKFAST, SATURDAYS AND SUNDAYS
     Route: 048
     Dates: start: 20230901
  8. PREDNISOLONE [Concomitant]
     Active Substance: PREDNISOLONE
     Indication: Pneumonitis
     Dosage: 3 MG/DAY, AFTER BREAKFAST
     Route: 048
     Dates: start: 20230901
  9. URSO [Concomitant]
     Active Substance: URSODIOL
     Indication: Hepatic function abnormal
     Dosage: 300 MG/DAY, AFTER EACH MEAL
     Route: 048
     Dates: start: 20230901
  10. LOXOPROFEN SODIUM DIHYDRATE [Concomitant]
     Active Substance: LOXOPROFEN SODIUM DIHYDRATE
     Indication: Analgesic therapy
     Dosage: 120 MG/DAY, AFTER BREAKFAST AND SUPPER
     Route: 048
     Dates: start: 20230724
  11. TRICHLORMETHIAZIDE [Concomitant]
     Active Substance: TRICHLORMETHIAZIDE
     Indication: Oedema peripheral
     Dosage: 0.5 MG/DAY, AFTER BREAKFAST
     Route: 048
     Dates: start: 20230722
  12. MAGNESIUM OXIDE [Concomitant]
     Active Substance: MAGNESIUM OXIDE
     Indication: Constipation
     Dosage: 1980 MG/DAY, AFTER EACH MEAL
     Route: 048
     Dates: start: 20230303
  13. SENNA [Concomitant]
     Active Substance: SENNOSIDES
     Indication: Constipation
     Dosage: 160 MG PER DOSE, AS NEEDED
     Route: 048

REACTIONS (6)
  - Tongue erosion [Recovering/Resolving]
  - Lip erosion [Recovering/Resolving]
  - Stomatitis [Recovering/Resolving]
  - Glossitis [Recovering/Resolving]
  - Respiratory disorder [Recovering/Resolving]
  - Treatment noncompliance [Unknown]

NARRATIVE: CASE EVENT DATE: 20230902
